FAERS Safety Report 4763487-0 (Version None)
Quarter: 2005Q3

REPORT INFORMATION
  Report Type: 
  Country: None (occurrence: None)
  Receive Date: 20050908
  Receipt Date: 20050831
  Transmission Date: 20060218
  Serious: Yes (Hospitalization)
  Sender: FDA-Public Use
  Company Number: AU-BOEHRINGER INGELHEIM PHARMACEUTICALS, INC.-2005-BP-15345AU

PATIENT
  Age: 85 Year
  Sex: Male

DRUGS (8)
  1. PERSANTIN SR [Suspect]
     Indication: TRANSIENT ISCHAEMIC ATTACK
     Route: 048
     Dates: end: 20040420
  2. ASPIRIN [Suspect]
     Indication: ACUTE MYOCARDIAL INFARCTION
     Route: 048
     Dates: end: 20040420
  3. CLOPIDOGREL [Suspect]
     Indication: ADVERSE EVENT
     Route: 048
     Dates: start: 20040421, end: 20040424
  4. NITROGLYCERIN [Concomitant]
     Indication: ADVERSE EVENT
  5. LASIX [Concomitant]
     Indication: ADVERSE EVENT
  6. PRAVASTATIN [Concomitant]
  7. CARVEDILOL [Concomitant]
     Indication: CARDIAC FAILURE CONGESTIVE
  8. MIRTAZAPINE [Concomitant]
     Indication: DEPRESSION

REACTIONS (1)
  - EPISTAXIS [None]
